FAERS Safety Report 10738429 (Version 1)
Quarter: 2015Q1

REPORT INFORMATION
  Report Type: Spontaneous
  Country: AU (occurrence: AU)
  Receive Date: 20150126
  Receipt Date: 20150126
  Transmission Date: 20150721
  Serious: Yes (Other)
  Sender: FDA-Public Use
  Company Number: AU-ACTAVIS-2015-00719

PATIENT
  Age: 8 Year
  Sex: Female

DRUGS (4)
  1. CALCITRIOL. [Concomitant]
     Active Substance: CALCITRIOL
     Indication: OSTEOGENESIS IMPERFECTA
     Dosage: 250 NG, BID
     Route: 065
  2. CALCIUM [Concomitant]
     Active Substance: CALCIUM
     Indication: OSTEOGENESIS IMPERFECTA
     Dosage: 1 G, BID
     Route: 065
  3. ZOLEDRONIC ACID (UNKNOWN) [Suspect]
     Active Substance: ZOLEDRONIC ACID
     Indication: OSTEOGENESIS IMPERFECTA
     Dosage: 0.05 MG/KG, CYCLICAL - EVERY 6 MONTHS (THE FIRST DOSE DIVIDED IN 0.0125 MG/KG AND 0.0375 MG/KG
     Route: 042
  4. SODIUM CHLORIDE. [Concomitant]
     Active Substance: SODIUM CHLORIDE
     Indication: MEDICATION DILUTION
     Dosage: 100 ML, CYCLICAL - EVERY 6 MONTHS
     Route: 042

REACTIONS (4)
  - Radius fracture [Recovered/Resolved]
  - Growth retardation [None]
  - Osteosclerosis [Unknown]
  - Fall [None]
